FAERS Safety Report 7397123-4 (Version None)
Quarter: 2011Q2

REPORT INFORMATION
  Report Type: 
  Country: None (occurrence: None)
  Receive Date: 20110406
  Receipt Date: 20110330
  Transmission Date: 20111010
  Serious: Yes (Death)
  Sender: FDA-Public Use
  Company Number: A0921357A

PATIENT
  Age: 60 Year
  Sex: Male

DRUGS (1)
  1. MEPRON [Suspect]
     Route: 048
     Dates: start: 20110204, end: 20110330

REACTIONS (3)
  - CEREBROVASCULAR ACCIDENT [None]
  - TOXOPLASMOSIS [None]
  - MENINGITIS [None]
